FAERS Safety Report 24040329 (Version 1)
Quarter: 2024Q3

REPORT INFORMATION
  Report Type: Spontaneous
  Country: DE (occurrence: DE)
  Receive Date: 20240702
  Receipt Date: 20240702
  Transmission Date: 20241017
  Serious: Yes (Congenital Anomaly, Other)
  Sender: SANDOZ
  Company Number: DE-ARISTO PHARMA-CLIND-FENT202406231-|2017:52:204-13 L2A-DD-20240614-7482689-130046

PATIENT

DRUGS (20)
  1. ATOSIBAN [Suspect]
     Active Substance: ATOSIBAN
     Indication: Foetal exposure during pregnancy
     Route: 064
  2. CLINDAMYCIN HYDROCHLORIDE [Suspect]
     Active Substance: CLINDAMYCIN HYDROCHLORIDE
     Indication: Foetal exposure during pregnancy
     Dosage: 1 DF
     Route: 064
  3. CLINDAMYCIN HYDROCHLORIDE [Suspect]
     Active Substance: CLINDAMYCIN HYDROCHLORIDE
     Indication: Antibiotic prophylaxis
     Dosage: 600 MG,UNK
     Route: 064
  4. DESFLURANE [Suspect]
     Active Substance: DESFLURANE
     Indication: Foetal exposure during pregnancy
     Dosage: 3.9-4.6% VOL%
     Route: 064
  5. EPINEPHRINE [Suspect]
     Active Substance: EPINEPHRINE
     Indication: Hypotension
     Dosage: 0.01 MICRO-G/KG/MIN,UNK
     Route: 065
  6. EPINEPHRINE [Suspect]
     Active Substance: EPINEPHRINE
     Indication: Foetal exposure during pregnancy
     Dosage: 0.01 PG/KG/MIN,UNK
     Route: 064
  7. EPINEPHRINE [Suspect]
     Active Substance: EPINEPHRINE
     Indication: Anaesthesia
     Dosage: 0.02 MICRO-G/KG/MIN,UNK
     Route: 064
  8. FENTANYL [Suspect]
     Active Substance: FENTANYL\FENTANYL CITRATE
     Indication: Endotracheal intubation
     Dosage: 0.2 MG
     Route: 064
  9. FENTANYL [Suspect]
     Active Substance: FENTANYL\FENTANYL CITRATE
     Indication: Foetal exposure during pregnancy
     Dosage: 1 DF
     Route: 064
  10. GENTAMICIN [Suspect]
     Active Substance: GENTAMICIN
     Dosage: 1 DF
     Route: 064
  11. GENTAMICIN [Suspect]
     Active Substance: GENTAMICIN
     Indication: Foetal exposure during pregnancy
     Dosage: 120MG,UNK
     Route: 064
  12. GENTAMICIN SULFATE [Suspect]
     Active Substance: GENTAMICIN SULFATE
     Dosage: 1 DF
     Route: 064
  13. GENTAMICIN SULFATE [Suspect]
     Active Substance: GENTAMICIN SULFATE
     Indication: Antibiotic prophylaxis
     Dosage: 120 MG,UNK
     Route: 064
  14. REMIFENTANIL [Suspect]
     Active Substance: REMIFENTANIL
     Indication: Foetal exposure during pregnancy
     Dosage: 0.12 PG/KG/MIN
     Route: 064
  15. REMIFENTANIL HYDROCHLORIDE [Suspect]
     Active Substance: REMIFENTANIL HYDROCHLORIDE
     Indication: Maintenance of anaesthesia
     Dosage: 0.12 MICRO-G/KG/MIN,UNK
     Route: 064
  16. ROCURONIUM BROMIDE [Suspect]
     Active Substance: ROCURONIUM BROMIDE
     Dosage: 1 DF
     Route: 064
  17. ROCURONIUM BROMIDE [Suspect]
     Active Substance: ROCURONIUM BROMIDE
     Dosage: 10 MG,REPEATED DOSES
     Route: 064
  18. ROCURONIUM BROMIDE [Suspect]
     Active Substance: ROCURONIUM BROMIDE
     Indication: Endotracheal intubation
     Dosage: 70 MG,UNK
     Route: 064
  19. THIOPENTAL SODIUM [Suspect]
     Active Substance: THIOPENTAL SODIUM
     Indication: Endotracheal intubation
     Dosage: 1 DF
     Route: 064
  20. THIOPENTAL SODIUM [Suspect]
     Active Substance: THIOPENTAL SODIUM
     Indication: Foetal exposure during pregnancy
     Dosage: 450 MG,UNK
     Route: 064

REACTIONS (4)
  - Anorectal disorder [Unknown]
  - Premature baby [Unknown]
  - Congenital bladder anomaly [Unknown]
  - Foetal exposure during pregnancy [Recovered/Resolved]
